FAERS Safety Report 7351397-4 (Version None)
Quarter: 2011Q1

REPORT INFORMATION
  Report Type: 
  Country: None (occurrence: None)
  Receive Date: 20110314
  Receipt Date: 20110303
  Transmission Date: 20110831
  Serious: Yes (Hospitalization)
  Sender: FDA-Public Use
  Company Number: US-ELI_LILLY_AND_COMPANY-US200912005057

PATIENT
  Sex: Female

DRUGS (14)
  1. ASPIRIN [Concomitant]
     Dates: end: 20100104
  2. FORTEO [Suspect]
     Indication: OSTEOPOROSIS
     Dosage: 20 UG, DAILY (1/D)
     Route: 065
     Dates: end: 20100104
  3. FORTEO [Suspect]
     Dosage: 20 UG, DAILY (1/D)
     Route: 065
  4. CO-Q10 [Concomitant]
     Dosage: UNK, DAILY (1/D)
  5. CITRUCEL [Concomitant]
  6. FORTEO [Suspect]
     Dosage: 20 UG, DAILY (1/D)
     Route: 065
     Dates: end: 20110124
  7. AMITIZA [Concomitant]
     Indication: DIVERTICULITIS
     Dates: end: 20100104
  8. VITAMINS NOS [Concomitant]
     Dosage: UNK, DAILY (1/D)
     Dates: end: 20100104
  9. VITAMIN D [Concomitant]
     Dosage: 2000 IU, DAILY (1/D)
  10. FORTEO [Suspect]
     Dosage: 20 UG, DAILY (1/D)
     Route: 065
  11. LOVASTATIN [Concomitant]
     Dates: end: 20100104
  12. CALCIUM /N/A/ [Concomitant]
     Dosage: UNK, 2/D
     Dates: end: 20100104
  13. LIPITOR [Concomitant]
     Dosage: 10 MG, DAILY (1/D)
  14. SYNTHROID [Concomitant]
     Dates: end: 20100104

REACTIONS (13)
  - BLOOD POTASSIUM DECREASED [None]
  - PAIN [None]
  - DIVERTICULITIS [None]
  - INTESTINAL FUNCTIONAL DISORDER [None]
  - HAEMATOCHEZIA [None]
  - BLOOD CALCIUM INCREASED [None]
  - ASTHENIA [None]
  - OEDEMA PERIPHERAL [None]
  - DIVERTICULUM [None]
  - MUSCLE DISORDER [None]
  - ABDOMINAL PAIN UPPER [None]
  - CONSTIPATION [None]
  - INTERVERTEBRAL DISC PROTRUSION [None]
